FAERS Safety Report 5260875-3 (Version None)
Quarter: 2007Q1

REPORT INFORMATION
  Report Type: 
  Country: None (occurrence: None)
  Receive Date: 20070309
  Receipt Date: 20070227
  Transmission Date: 20070707
  Serious: Yes (Other)
  Sender: FDA-Public Use
  Company Number: US-ROCHE-484591

PATIENT
  Sex: Female

DRUGS (1)
  1. INTERFERON ALFA [Suspect]
     Indication: HEPATITIS C
     Dosage: PATIENT HAS BEEN ON AN UNKNOWN INTERFERON FOR SEVERAL YEARS.
     Route: 065

REACTIONS (1)
  - HEPATOCELLULAR DAMAGE [None]
